FAERS Safety Report 9022872 (Version 1)
Quarter: 2013Q1

REPORT INFORMATION
  Report Type: Spontaneous
  Country: US (occurrence: US)
  Receive Date: 20130120
  Receipt Date: 20130120
  Transmission Date: 20140127
  Serious: No
  Sender: FDA-Public Use
  Company Number: US-ALLERGAN-1216923US

PATIENT
  Age: 68 Year
  Sex: Female

DRUGS (4)
  1. BOTOX? [Suspect]
     Indication: PAIN
     Dosage: 200 UNITS, SINGLE
     Route: 030
  2. BOTOX? [Suspect]
     Dosage: 100 UNITS, SINGLE
     Route: 030
  3. LEVOTHYROXINE [Concomitant]
     Indication: THYROID PAIN
  4. LISINOPRIL [Concomitant]
     Indication: HYPERTENSION

REACTIONS (2)
  - Headache [Recovered/Resolved]
  - Drug ineffective [Unknown]
